FAERS Safety Report 9820402 (Version 2)
Quarter: 2014Q1

REPORT INFORMATION
  Report Type: Spontaneous
  Country: US (occurrence: None)
  Receive Date: 20140114
  Receipt Date: 20140128
  Transmission Date: 20141002
  Serious: Yes (Other)
  Sender: FDA-Public Use
  Company Number: AUR-APL-2014-00232

PATIENT
  Age: 66 Year
  Sex: Male
  Weight: 104.33 kg

DRUGS (11)
  1. GABAPENTIN [Suspect]
     Indication: NEURALGIA
     Dosage: 600 MG (300 MG, 2 IN 1 D)
     Route: 048
     Dates: start: 2013
  2. AMPYRA [Suspect]
     Indication: GAIT DISTURBANCE
     Dosage: 20 MG (10 MG, 1 IN 12 HR)
     Route: 048
     Dates: start: 20130717, end: 2013
  3. AMPYRA [Suspect]
     Indication: MULTIPLE SCLEROSIS
     Dosage: 20 MG (10 MG, 1 IN 12 HR)
     Route: 048
     Dates: start: 20130717, end: 2013
  4. TYSABRI (NATALIZUMAB) [Concomitant]
  5. PROVIGIL (MODAFINIL) [Concomitant]
  6. BACLOFEN (BACLOFEN) [Concomitant]
  7. VESICARE (SOLIFENACIN SUCCINATE) [Concomitant]
  8. ASPIRIN (ACETYLSALIC ACID) [Concomitant]
  9. PRAVASTATIN (PRAVASTATIN) [Concomitant]
  10. COZAAR (LOSARTAN POTASSIUM) (50 MILLIGRAM, TABLETS) (LOSARTAN POTASSIUM) [Concomitant]
  11. ATENOLOL (ATENOLOL) [Concomitant]

REACTIONS (7)
  - Fatigue [None]
  - Neuralgia [None]
  - Condition aggravated [None]
  - Drug interaction [None]
  - Drug ineffective [None]
  - Abasia [None]
  - Coccydynia [None]
